FAERS Safety Report 7074422-7 (Version None)
Quarter: 2010Q4

REPORT INFORMATION
  Report Type: 
  Country: None (occurrence: None)
  Receive Date: 20101021
  Receipt Date: 20101006
  Transmission Date: 20110411
  Serious: Yes (Hospitalization, Other)
  Sender: FDA-Public Use
  Company Number: 012654

PATIENT
  Sex: Male
  Weight: 92.5 kg

DRUGS (21)
  1. CERTOLIZUMAB PEGOL [Suspect]
     Indication: RHEUMATOID ARTHRITIS
     Dosage: SEE IMAGE
     Route: 058
     Dates: start: 20091007, end: 20091216
  2. CERTOLIZUMAB PEGOL [Suspect]
     Indication: RHEUMATOID ARTHRITIS
     Dosage: SEE IMAGE
     Route: 058
     Dates: start: 20091230, end: 20100407
  3. CERTOLIZUMAB PEGOL [Suspect]
     Indication: RHEUMATOID ARTHRITIS
     Dosage: SEE IMAGE
     Route: 058
     Dates: start: 20100421
  4. METHOTREXATE [Concomitant]
  5. ACETAMINOPHEN AND HYDROCODONE BITARTRATE [Concomitant]
  6. FOLIC ACID [Concomitant]
  7. ADVAIR DISKUS 100/50 [Concomitant]
  8. CLONIDINE [Concomitant]
  9. LASIX [Concomitant]
  10. SYNTHROID [Concomitant]
  11. KLOR-CON [Concomitant]
  12. CELEXA [Concomitant]
  13. ALLOPURINOL [Concomitant]
  14. MULTI-VITAMINS [Concomitant]
  15. VITAMIN B-12 NOS [Concomitant]
  16. FLOMAX [Concomitant]
  17. CALCIUM D /01272001/ [Concomitant]
  18. LISINOPRIL [Concomitant]
  19. LANTUS [Concomitant]
  20. INSULIN [Concomitant]
  21. DESOXIMETASONE [Concomitant]

REACTIONS (15)
  - BACTERIAL INFECTION [None]
  - BLOOD CREATININE INCREASED [None]
  - BLOOD GLUCOSE INCREASED [None]
  - BLOOD UREA INCREASED [None]
  - BRONCHITIS [None]
  - CARDIAC FAILURE CONGESTIVE [None]
  - CHRONIC OBSTRUCTIVE PULMONARY DISEASE [None]
  - CONDITION AGGRAVATED [None]
  - HAEMOGLOBIN DECREASED [None]
  - LUNG INFECTION PSEUDOMONAL [None]
  - PLATELET COUNT DECREASED [None]
  - PNEUMONITIS [None]
  - RED BLOOD CELL COUNT DECREASED [None]
  - SPUTUM CULTURE POSITIVE [None]
  - TROPONIN I INCREASED [None]
